FAERS Safety Report 4962370-5 (Version None)
Quarter: 2006Q2

REPORT INFORMATION
  Report Type: 
  Country: None (occurrence: None)
  Receive Date: 20060403
  Receipt Date: 20060403
  Transmission Date: 20061013
  Serious: Yes (Life-Threatening)
  Sender: FDA-Public Use
  Company Number: None

PATIENT
  Sex: Male
  Weight: 73.9363 kg

DRUGS (9)
  1. PACLITAXEL [Suspect]
     Indication: BLADDER ADENOCARCINOMA STAGE UNSPECIFIED
     Dosage: 380 MG ONCE IV BOLUS
     Route: 040
     Dates: start: 20051003, end: 20051003
  2. ZOFRAN [Concomitant]
  3. ZANTAC [Concomitant]
  4. BENADRYL [Concomitant]
  5. ATENOLOL [Concomitant]
  6. DILTIAZEM [Concomitant]
  7. IBUPROFEN [Concomitant]
  8. PRAZOSIN [Concomitant]
  9. DECADRON [Concomitant]

REACTIONS (1)
  - BLOOD PRESSURE INCREASED [None]
